FAERS Safety Report 12595855 (Version 1)
Quarter: 2016Q3

REPORT INFORMATION
  Report Type: Report from Study
  Country: US (occurrence: US)
  Receive Date: 20160726
  Receipt Date: 20160726
  Transmission Date: 20161109
  Serious: No
  Sender: FDA-Public Use
  Company Number: US-AMGEN-USASL2016031918

PATIENT
  Age: 58 Year
  Sex: Female

DRUGS (3)
  1. KYPROLIS [Suspect]
     Active Substance: CARFILZOMIB
     Dosage: 3 WEEKS ON AND 1 WEEK OFF
     Route: 065
     Dates: end: 201603
  2. KYPROLIS [Suspect]
     Active Substance: CARFILZOMIB
     Indication: PRODUCT USED FOR UNKNOWN INDICATION
     Dosage: 2 WEEKS THEN OFF FOR 2 WEEK
     Route: 065
     Dates: start: 2014
  3. REVLIMID [Concomitant]
     Active Substance: LENALIDOMIDE
     Dosage: 15 MG

REACTIONS (4)
  - Blood pressure increased [Not Recovered/Not Resolved]
  - Protein total increased [Unknown]
  - Dyspnoea [Recovered/Resolved]
  - Blood potassium decreased [Unknown]
